FAERS Safety Report 12928803 (Version 1)
Quarter: 2016Q4

REPORT INFORMATION
  Report Type: Spontaneous
  Country: IT (occurrence: IT)
  Receive Date: 20161110
  Receipt Date: 20161110
  Transmission Date: 20170207
  Serious: Yes (Hospitalization)
  Sender: FDA-Public Use
  Company Number: PHHY2016IT152844

PATIENT
  Age: 48 Year
  Sex: Female

DRUGS (3)
  1. OLANZAPINE. [Suspect]
     Active Substance: OLANZAPINE
     Indication: DRUG ABUSE
     Dosage: 100 MG, ONCE/SINGLE
     Route: 048
     Dates: start: 20161011, end: 20161011
  2. VENLAFAXIN [Suspect]
     Active Substance: VENLAFAXINE HYDROCHLORIDE
     Indication: DRUG ABUSE
     Dosage: 6 G, ONCE/SINGLE
     Route: 048
     Dates: start: 20161011, end: 20161011
  3. RIVOTRIL [Suspect]
     Active Substance: CLONAZEPAM
     Indication: DRUG ABUSE
     Dosage: 40 MG, ONCE/SINGLE
     Route: 048
     Dates: start: 20161011, end: 20161011

REACTIONS (4)
  - Drug abuse [Unknown]
  - Coma [Unknown]
  - Hypothermia [Unknown]
  - Toxicity to various agents [Unknown]

NARRATIVE: CASE EVENT DATE: 20161011
